FAERS Safety Report 4832708-8 (Version None)
Quarter: 2005Q4

REPORT INFORMATION
  Report Type: 
  Country: None (occurrence: None)
  Receive Date: 20051121
  Receipt Date: 20051114
  Transmission Date: 20060501
  Serious: Yes (Other)
  Sender: FDA-Public Use
  Company Number: JP-AVENTIS-200513398JP

PATIENT
  Age: 30 Year
  Sex: Female

DRUGS (1)
  1. KETEK [Suspect]
     Route: 048

REACTIONS (3)
  - HYPOGLYCAEMIA [None]
  - MOBILITY DECREASED [None]
  - SPEECH DISORDER [None]
